FAERS Safety Report 6213967-6 (Version None)
Quarter: 2009Q2

REPORT INFORMATION
  Report Type: 
  Country: None (occurrence: None)
  Receive Date: 20090604
  Receipt Date: 20090602
  Transmission Date: 20091009
  Serious: Yes (Hospitalization)
  Sender: FDA-Public Use
  Company Number: CN-JNJFOC-20090600536

PATIENT
  Age: 26 Year
  Sex: Female

DRUGS (1)
  1. CRAVIT [Suspect]
     Indication: PNEUMONIA
     Route: 042

REACTIONS (2)
  - SUPRAVENTRICULAR EXTRASYSTOLES [None]
  - VENTRICULAR ARRHYTHMIA [None]
